FAERS Safety Report 17454454 (Version 3)
Quarter: 2020Q3

REPORT INFORMATION
  Report Type: Report from Study
  Country: JP (occurrence: JP)
  Receive Date: 20200225
  Receipt Date: 20200928
  Transmission Date: 20201102
  Serious: Yes (Hospitalization, Other)
  Sender: FDA-Public Use
  Company Number: JP-ALEXION-A202002120

PATIENT
  Age: 1 Day
  Sex: Female
  Weight: 2.5 kg

DRUGS (7)
  1. ALDACTONE A [Concomitant]
     Active Substance: SPIRONOLACTONE
     Indication: HYPOPHOSPHATASIA
     Dosage: 1MG TO 2.7MG, TID
     Route: 048
     Dates: start: 20200209, end: 20200613
  2. VITAMIN B6 [Concomitant]
     Active Substance: PYRIDOXINE HYDROCHLORIDE
     Indication: HYPOPHOSPHATASIA
     Dosage: 3.3MG TO 8MG, TID
     Route: 048
     Dates: start: 20200128
  3. STRENSIQ [Suspect]
     Active Substance: ASFOTASE ALFA
     Indication: HYPOPHOSPHATASIA
     Dosage: 2 MG/KG, TIW
     Route: 058
     Dates: start: 20200127
  4. FUROSEMIDE. [Concomitant]
     Active Substance: FUROSEMIDE
     Indication: HYPOPHOSPHATASIA
     Dosage: 0.1MG ? 2.7MG, TID
     Route: 048
     Dates: start: 20200209, end: 20200613
  5. MUCODYNE?DS [Concomitant]
     Active Substance: CARBOCYSTEINE
     Indication: PRODUCT USED FOR UNKNOWN INDICATION
     Dosage: 24 TO 43 MG, TID
     Route: 048
     Dates: start: 20200224
  6. CERCINE [Concomitant]
     Active Substance: DIAZEPAM
     Indication: PROPHYLAXIS
     Dosage: 0.5ML, BID
     Route: 048
     Dates: start: 20200216, end: 20200328
  7. DRUG NOT ADMINISTERED [Concomitant]
     Active Substance: UNSPECIFIED INGREDIENT
     Indication: HYPOPHOSPHATASIA
     Dosage: 0.1G TO 0.2G, 8 TIMES DAILY
     Route: 048
     Dates: start: 20200204, end: 20200607

REACTIONS (8)
  - Vomiting [Not Recovered/Not Resolved]
  - Hypocalcaemia [Recovering/Resolving]
  - Respiratory disorder [Not Recovered/Not Resolved]
  - Blood immunoglobulin G decreased [Unknown]
  - Auditory disorder [Unknown]
  - Hyperphosphataemia [Recovering/Resolving]
  - Anaemia [Recovering/Resolving]
  - Chest X-ray abnormal [Recovering/Resolving]

NARRATIVE: CASE EVENT DATE: 20200128
